FAERS Safety Report 6370078-7 (Version None)
Quarter: 2009Q3

REPORT INFORMATION
  Report Type: 
  Country: None (occurrence: None)
  Receive Date: 20090923
  Receipt Date: 20070503
  Transmission Date: 20100115
  Serious: Yes (Hospitalization)
  Sender: FDA-Public Use
  Company Number: US-ASTRAZENECA-2006UW21431

PATIENT
  Age: 577 Month
  Sex: Female
  Weight: 81.9 kg

DRUGS (17)
  1. SEROQUEL [Suspect]
     Indication: DEPRESSION
     Route: 048
     Dates: start: 20010101
  2. SEROQUEL [Suspect]
     Indication: MOOD SWINGS
     Route: 048
     Dates: start: 20010101
  3. SEROQUEL [Suspect]
     Dosage: 25 MG TO 800 MG
     Route: 048
     Dates: start: 20020301
  4. SEROQUEL [Suspect]
     Dosage: 25 MG TO 800 MG
     Route: 048
     Dates: start: 20020301
  5. HALDOL [Concomitant]
     Dates: start: 19860101, end: 19910101
  6. THORAZINE [Concomitant]
     Dates: start: 19860101, end: 19910101
  7. ZYPREXA [Concomitant]
     Dates: start: 19920101
  8. ZYPREXA [Concomitant]
     Dates: start: 20010713
  9. AVANDAMET [Concomitant]
  10. METHADONE HCL [Concomitant]
  11. DEPAKOTE [Concomitant]
     Dates: start: 20010705
  12. TRAZODONE [Concomitant]
     Dates: start: 20010705
  13. LITHIUM CARBONATE [Concomitant]
     Dates: start: 20010706
  14. PHENYTOIN SODIUM [Concomitant]
     Dates: start: 20010706
  15. ABILIFY [Concomitant]
     Dates: start: 20040623
  16. BENZTROPINE MESYLATE [Concomitant]
     Dates: start: 20040623
  17. PREMPRO [Concomitant]
     Dosage: ONE TABLET DAILY
     Dates: start: 20040623

REACTIONS (1)
  - DIABETES MELLITUS [None]
